FAERS Safety Report 8692160 (Version 4)
Quarter: 2013Q1

REPORT INFORMATION
  Report Type: Spontaneous
  Country: JP (occurrence: JP)
  Receive Date: 20120730
  Receipt Date: 20130308
  Transmission Date: 20140127
  Serious: Yes (Hospitalization, Disabling, Other)
  Sender: FDA-Public Use
  Company Number: JP-ASTRAZENECA-2012SE51516

PATIENT
  Age: 69 Year
  Sex: Female
  Weight: 42 kg

DRUGS (24)
  1. NEXIUM [Suspect]
     Indication: GASTROOESOPHAGEAL REFLUX DISEASE
     Route: 048
     Dates: start: 20120618, end: 20120702
  2. OMEPRAL [Suspect]
     Indication: GASTROOESOPHAGEAL REFLUX DISEASE
     Route: 048
     Dates: start: 20040428
  3. OMEPRAL [Suspect]
     Indication: HELICOBACTER INFECTION
     Route: 048
     Dates: start: 20040428
  4. OMEPRAL [Suspect]
     Indication: GASTROOESOPHAGEAL REFLUX DISEASE
     Dosage: OMEPRAZON, 10 MG DAILY
     Dates: start: 20050804, end: 20070626
  5. OMEPRAL [Suspect]
     Indication: HELICOBACTER INFECTION
     Dosage: OMEPRAZON, 10 MG DAILY
     Dates: start: 20050804, end: 20070626
  6. OMEPRAL [Suspect]
     Indication: GASTROOESOPHAGEAL REFLUX DISEASE
     Route: 048
     Dates: start: 20070627, end: 20071021
  7. OMEPRAL [Suspect]
     Indication: HELICOBACTER INFECTION
     Route: 048
     Dates: start: 20070627, end: 20071021
  8. OMEPRAL [Suspect]
     Indication: GASTROOESOPHAGEAL REFLUX DISEASE
     Route: 048
     Dates: start: 20071022, end: 20101116
  9. OMEPRAL [Suspect]
     Indication: HELICOBACTER INFECTION
     Route: 048
     Dates: start: 20071022, end: 20101116
  10. PARIET [Suspect]
     Indication: GASTROOESOPHAGEAL REFLUX DISEASE
     Route: 048
     Dates: start: 20040318
  11. PARIET [Suspect]
     Indication: GASTROOESOPHAGEAL REFLUX DISEASE
     Route: 048
     Dates: start: 20101117, end: 20101123
  12. TAKEPRON [Suspect]
     Indication: GASTROOESOPHAGEAL REFLUX DISEASE
     Route: 048
     Dates: start: 20120703, end: 20120704
  13. WARFARIN [Concomitant]
     Indication: SUBCLAVIAN ARTERY STENOSIS
     Dosage: 1.5-3 MG/DOSE EVERY DAY
     Route: 048
     Dates: start: 20101117
  14. GASTER D [Concomitant]
     Indication: GASTROOESOPHAGEAL REFLUX DISEASE
     Route: 048
     Dates: start: 20101124, end: 20120617
  15. CRESTOR [Concomitant]
     Indication: HYPERLIPIDAEMIA
     Route: 048
     Dates: start: 20081126, end: 20101116
  16. ZETIA [Concomitant]
     Indication: HYPERLIPIDAEMIA
     Route: 048
     Dates: start: 20111220
  17. CLARITH [Concomitant]
     Indication: HELICOBACTER INFECTION
     Route: 048
     Dates: start: 20040428
  18. PASETOCIN [Concomitant]
     Indication: HELICOBACTER INFECTION
     Route: 048
     Dates: start: 20040428
  19. AMLODIN OD [Concomitant]
     Indication: HYPERTENSION
     Route: 048
     Dates: start: 20090529, end: 20101116
  20. MICARDIS [Concomitant]
     Indication: HYPERTENSION
     Route: 048
     Dates: start: 20090529, end: 20101116
  21. PLETAAL OD [Concomitant]
     Indication: SUBCLAVIAN ARTERY STENOSIS
     Route: 048
     Dates: start: 20101116
  22. MIYA-BM [Concomitant]
     Indication: DYSPEPSIA
     Route: 048
     Dates: start: 20101118
  23. EXCELASE [Concomitant]
     Indication: DYSPEPSIA
     Route: 048
     Dates: start: 20101118
  24. PROTECADIN [Concomitant]
     Route: 048
     Dates: start: 200405, end: 20050803

REACTIONS (7)
  - Hypoalbuminaemia [Recovering/Resolving]
  - Subclavian artery stenosis [Not Recovered/Not Resolved]
  - Protein-losing gastroenteropathy [Unknown]
  - Intracranial aneurysm [Recovered/Resolved]
  - Hyperlipidaemia [Not Recovered/Not Resolved]
  - Hypertension [Not Recovered/Not Resolved]
  - Blood cholesterol decreased [Recovering/Resolving]
